FAERS Safety Report 20994136 (Version 1)
Quarter: 2022Q2

REPORT INFORMATION
  Report Type: Spontaneous
  Country: DE (occurrence: DE)
  Receive Date: 20220622
  Receipt Date: 20220622
  Transmission Date: 20220721
  Serious: Yes (Other)
  Sender: FDA-Public Use
  Company Number: DE-LESVI-2022000014

PATIENT
  Age: 31 Year
  Sex: Male

DRUGS (6)
  1. ESCITALOPRAM [Suspect]
     Active Substance: ESCITALOPRAM OXALATE
     Indication: Abdominal pain upper
     Dosage: WEEK 1 DOSE FROM 7X 20 TO 5X20 + 2X 17,5
  2. ESCITALOPRAM [Suspect]
     Active Substance: ESCITALOPRAM OXALATE
     Indication: Burnout syndrome
     Dosage: WEEK 2 DOSE 3X20 + 4X17,5
  3. ESCITALOPRAM [Suspect]
     Active Substance: ESCITALOPRAM OXALATE
     Indication: Nausea
     Dosage: WEEK 2 DOSE 3X20 + 4X17,5
  4. ESCITALOPRAM [Suspect]
     Active Substance: ESCITALOPRAM OXALATE
     Indication: Asthenia
     Dosage: WEEK 4 7X17.5
  5. ESCITALOPRAM [Suspect]
     Active Substance: ESCITALOPRAM OXALATE
     Dosage: 10-20MG
     Dates: start: 2014
  6. ESCITALOPRAM [Suspect]
     Active Substance: ESCITALOPRAM OXALATE
     Dosage: 20 MG

REACTIONS (9)
  - Drug dependence [Unknown]
  - Impaired work ability [Unknown]
  - Muscle twitching [Unknown]
  - Nausea [Unknown]
  - Malaise [Unknown]
  - Abdominal pain upper [Unknown]
  - Influenza like illness [Unknown]
  - Withdrawal syndrome [Unknown]
  - Wrong technique in product usage process [Unknown]
